FAERS Safety Report 10058320 (Version 1)
Quarter: 2014Q2

REPORT INFORMATION
  Report Type: Spontaneous
  Country: US (occurrence: US)
  Receive Date: 20140404
  Receipt Date: 20140404
  Transmission Date: 20141212
  Serious: No
  Sender: FDA-Public Use
  Company Number: US-PFIZER INC-2014090605

PATIENT
  Age: 38 Year
  Sex: Female
  Weight: 65.76 kg

DRUGS (3)
  1. ADVIL [Suspect]
     Dosage: 2 TABLETS (REGULAR STRENGTH), UNK
     Dates: start: 201402
  2. NUVIGIL [Suspect]
     Indication: NARCOLEPSY
     Dosage: 250 MG, UNK
     Dates: start: 20140224, end: 20140224
  3. NUVIGIL [Suspect]
     Indication: MULTIPLE SCLEROSIS
     Dosage: 2/3 OF 250 MG TABLET, UNK
     Dates: start: 20140225

REACTIONS (6)
  - Incorrect dose administered [Unknown]
  - Drug ineffective [Not Recovered/Not Resolved]
  - Drug intolerance [Not Recovered/Not Resolved]
  - Psychomotor hyperactivity [Not Recovered/Not Resolved]
  - Headache [Not Recovered/Not Resolved]
  - Therapeutic response changed [Unknown]
